FAERS Safety Report 12161114 (Version 4)
Quarter: 2016Q2

REPORT INFORMATION
  Report Type: Spontaneous
  Country: GB (occurrence: GB)
  Receive Date: 20160308
  Receipt Date: 20160418
  Transmission Date: 20160815
  Serious: Yes (Other)
  Sender: FDA-Public Use
  Company Number: GB-PFIZER INC-2016135435

PATIENT
  Age: 58 Year
  Sex: Female

DRUGS (105)
  1. HYDROCORTISONE ACETATE. [Suspect]
     Active Substance: HYDROCORTISONE ACETATE
     Dosage: UNK
     Dates: start: 20110107
  2. XALACOM [Suspect]
     Active Substance: LATANOPROST\TIMOLOL MALEATE
     Dosage: TO RIGHT EYE AT NIGHT (2.5 ML)
     Dates: start: 20150501
  3. XALACOM [Suspect]
     Active Substance: LATANOPROST\TIMOLOL MALEATE
     Dosage: TO RIGHT EYE AT NIGHT (2.5 ML)
     Route: 065
     Dates: start: 20120423
  4. XALACOM [Suspect]
     Active Substance: LATANOPROST\TIMOLOL MALEATE
     Dosage: TO RIGHT EYE AT NIGHT (2.5 ML)
     Dates: start: 20150917
  5. XALACOM [Suspect]
     Active Substance: LATANOPROST\TIMOLOL MALEATE
     Dosage: TO RIGHT EYE AT NIGHT (2.5 ML)
     Dates: start: 20120716
  6. CLIMESSE [Suspect]
     Active Substance: ESTRADIOL VALERATE\NORETHINDRONE
     Indication: HORMONE REPLACEMENT THERAPY
     Dosage: 1 DF, 1X/DAY
     Route: 048
     Dates: start: 20000921
  7. CLIMESSE [Suspect]
     Active Substance: ESTRADIOL VALERATE\NORETHINDRONE
     Dosage: UNK
     Route: 048
     Dates: start: 20140210
  8. CLIMESSE [Suspect]
     Active Substance: ESTRADIOL VALERATE\NORETHINDRONE
     Dosage: 1 DF, 1X/DAY
     Route: 048
     Dates: start: 20010319
  9. LATANOPROST. [Suspect]
     Active Substance: LATANOPROST
     Dosage: 01 DROP AT NIGHT IN BOTH EYES
     Dates: start: 20060120
  10. LATANOPROST. [Suspect]
     Active Substance: LATANOPROST
     Dosage: 01 DROP AT NIGHT IN BOTH EYES
     Dates: start: 20050929
  11. LATANOPROST. [Suspect]
     Active Substance: LATANOPROST
     Dosage: 01 DROP AT NIGHT IN BOTH EYES
     Dates: start: 20050725
  12. LATANOPROST. [Suspect]
     Active Substance: LATANOPROST
     Dosage: 01 DROP AT NIGHT IN BOTH EYES
     Dates: start: 20071122
  13. XALACOM [Suspect]
     Active Substance: LATANOPROST\TIMOLOL MALEATE
     Dosage: TO RIGHT EYE AT NIGHT (2.5 ML)
     Dates: start: 20120131
  14. XALACOM [Suspect]
     Active Substance: LATANOPROST\TIMOLOL MALEATE
     Dosage: TO RIGHT EYE AT NIGHT (2.5 ML)
     Dates: start: 20150603
  15. XALACOM [Suspect]
     Active Substance: LATANOPROST\TIMOLOL MALEATE
     Dosage: TO RIGHT EYE AT NIGHT (2.5 ML)
     Dates: start: 20140425
  16. XALACOM [Suspect]
     Active Substance: LATANOPROST\TIMOLOL MALEATE
     Dosage: TO RIGHT EYE AT NIGHT (2.5 ML)
     Dates: start: 20141020
  17. XALACOM [Suspect]
     Active Substance: LATANOPROST\TIMOLOL MALEATE
     Dosage: TO RIGHT EYE AT NIGHT (2.5 ML)
     Dates: start: 20121015
  18. XALACOM [Suspect]
     Active Substance: LATANOPROST\TIMOLOL MALEATE
     Dosage: TO RIGHT EYE AT NIGHT (2.5 ML)
     Dates: start: 20110228
  19. XALACOM [Suspect]
     Active Substance: LATANOPROST\TIMOLOL MALEATE
     Dosage: TO RIGHT EYE AT NIGHT (2.5 ML)
     Dates: start: 20101224, end: 20141020
  20. XALACOM [Suspect]
     Active Substance: LATANOPROST\TIMOLOL MALEATE
     Dosage: TO RIGHT EYE AT NIGHT (2.5 ML)
     Dates: start: 20110715
  21. XALACOM [Suspect]
     Active Substance: LATANOPROST\TIMOLOL MALEATE
     Dosage: TO RIGHT EYE AT NIGHT (2.5 ML)
     Dates: start: 20150114
  22. CLIMESSE [Suspect]
     Active Substance: ESTRADIOL VALERATE\NORETHINDRONE
     Dosage: 1 DF, 1X/DAY
     Route: 048
     Dates: start: 20080421
  23. CLIMESSE [Suspect]
     Active Substance: ESTRADIOL VALERATE\NORETHINDRONE
     Dosage: 1 DF, 1X/DAY
     Route: 048
     Dates: start: 20060620
  24. CLIMESSE [Suspect]
     Active Substance: ESTRADIOL VALERATE\NORETHINDRONE
     Dosage: 1 DF, 1X/DAY
     Route: 048
     Dates: start: 20040210
  25. CLIMESSE [Suspect]
     Active Substance: ESTRADIOL VALERATE\NORETHINDRONE
     Dosage: 1 DF, 1X/DAY
     Route: 048
     Dates: start: 20100218
  26. LATANOPROST. [Suspect]
     Active Substance: LATANOPROST
     Dosage: 01 DROP AT NIGHT IN BOTH EYES
     Dates: start: 20060119
  27. LATANOPROST. [Suspect]
     Active Substance: LATANOPROST
     Dosage: 01 DROP AT NIGHT IN BOTH EYES
     Dates: start: 20070110
  28. LATANOPROST. [Suspect]
     Active Substance: LATANOPROST
     Dosage: 01 DROP AT NIGHT IN BOTH EYES
     Dates: start: 20080108, end: 20080108
  29. XALACOM [Suspect]
     Active Substance: LATANOPROST\TIMOLOL MALEATE
     Dosage: TO RIGHT EYE AT NIGHT (2.5 ML)
     Dates: start: 20150714
  30. XALACOM [Suspect]
     Active Substance: LATANOPROST\TIMOLOL MALEATE
     Dosage: TO RIGHT EYE AT NIGHT (2.5 ML)
     Dates: start: 20110426
  31. XALACOM [Suspect]
     Active Substance: LATANOPROST\TIMOLOL MALEATE
     Dosage: TO RIGHT EYE AT NIGHT (2.5 ML)
     Dates: start: 20120525
  32. XALACOM [Suspect]
     Active Substance: LATANOPROST\TIMOLOL MALEATE
     Dosage: TO RIGHT EYE AT NIGHT (2.5 ML)
     Dates: start: 20130111
  33. XALACOM [Suspect]
     Active Substance: LATANOPROST\TIMOLOL MALEATE
     Dosage: TO RIGHT EYE AT NIGHT (2.5 ML)
     Dates: start: 20151230, end: 20151230
  34. INFLUENZA VIRUS [Suspect]
     Active Substance: INFLUENZA VIRUS VACCINE
     Indication: IMMUNISATION
     Dosage: 0.5 ML, UNK
     Dates: start: 20131028, end: 20131028
  35. CLIMESSE [Suspect]
     Active Substance: ESTRADIOL VALERATE\NORETHINDRONE
     Dosage: 1 DF, 1X/DAY
     Route: 048
     Dates: start: 20010829
  36. CLIMESSE [Suspect]
     Active Substance: ESTRADIOL VALERATE\NORETHINDRONE
     Dosage: 1 DF, 1X/DAY
     Route: 048
     Dates: start: 20140826
  37. CLIMESSE [Suspect]
     Active Substance: ESTRADIOL VALERATE\NORETHINDRONE
     Dosage: 1 DF, 1X/DAY
     Route: 048
     Dates: start: 20121210
  38. CLIMESSE [Suspect]
     Active Substance: ESTRADIOL VALERATE\NORETHINDRONE
     Dosage: 1 DF, 1X/DAY
     Route: 048
     Dates: start: 20110707
  39. CLIMESSE [Suspect]
     Active Substance: ESTRADIOL VALERATE\NORETHINDRONE
     Dosage: 1 DF, 1X/DAY
     Route: 048
     Dates: start: 20061128
  40. CLIMESSE [Suspect]
     Active Substance: ESTRADIOL VALERATE\NORETHINDRONE
     Dosage: 1 DF, 1X/DAY
     Route: 048
     Dates: start: 20020902
  41. CLIMESSE [Suspect]
     Active Substance: ESTRADIOL VALERATE\NORETHINDRONE
     Dosage: UNK
     Route: 048
     Dates: start: 20131210
  42. KLIOFEM [Suspect]
     Active Substance: ESTRADIOL\NORETHINDRONE ACETATE
     Dosage: 1 DF, DAILY
     Dates: start: 20010207
  43. LATANOPROST. [Suspect]
     Active Substance: LATANOPROST
     Dosage: 01 DROP AT NIGHT IN BOTH EYES
     Dates: start: 20061103
  44. XALACOM [Suspect]
     Active Substance: LATANOPROST\TIMOLOL MALEATE
     Dosage: TO RIGHT EYE AT NIGHT (2.5 ML)
     Dates: start: 20140617
  45. XALACOM [Suspect]
     Active Substance: LATANOPROST\TIMOLOL MALEATE
     Dosage: TO RIGHT EYE AT NIGHT (2.5 ML)
     Dates: start: 20140522
  46. XALACOM [Suspect]
     Active Substance: LATANOPROST\TIMOLOL MALEATE
     Dosage: TO RIGHT EYE AT NIGHT (2.5 ML)
     Dates: start: 20120823
  47. XALACOM [Suspect]
     Active Substance: LATANOPROST\TIMOLOL MALEATE
     Dosage: TO RIGHT EYE AT NIGHT (2.5 ML)
     Dates: start: 20150819
  48. XALACOM [Suspect]
     Active Substance: LATANOPROST\TIMOLOL MALEATE
     Dosage: TO RIGHT EYE AT NIGHT (2.5 ML)
     Dates: start: 20141216
  49. XALACOM [Suspect]
     Active Substance: LATANOPROST\TIMOLOL MALEATE
     Dosage: TO RIGHT EYE AT NIGHT (2.5 ML)
     Dates: start: 20140714
  50. CLIMESSE [Suspect]
     Active Substance: ESTRADIOL VALERATE\NORETHINDRONE
     Dosage: 1 DF, 1X/DAY
     Route: 048
     Dates: start: 20081006
  51. CLIMESSE [Suspect]
     Active Substance: ESTRADIOL VALERATE\NORETHINDRONE
     Dosage: 1 DF, 1X/DAY
     Route: 048
     Dates: start: 20071018
  52. CLIMESSE [Suspect]
     Active Substance: ESTRADIOL VALERATE\NORETHINDRONE
     Dosage: 1 DF, 1X/DAY
     Route: 048
     Dates: start: 20120105
  53. HYDROCORTISONE ACETATE. [Suspect]
     Active Substance: HYDROCORTISONE ACETATE
     Dosage: 15 G, TID
     Dates: start: 20020514
  54. LATANOPROST. [Suspect]
     Active Substance: LATANOPROST
     Dosage: 01 DROP AT NIGHT IN BOTH EYES
     Dates: start: 20050414
  55. LATANOPROST. [Suspect]
     Active Substance: LATANOPROST
     Dosage: 01 DROP AT NIGHT IN BOTH EYES
     Dates: start: 20070418
  56. LATANOPROST. [Suspect]
     Active Substance: LATANOPROST
     Dosage: 01 DROP AT NIGHT IN BOTH EYES
     Dates: start: 20071001
  57. XALACOM [Suspect]
     Active Substance: LATANOPROST\TIMOLOL MALEATE
     Dosage: TO RIGHT EYE AT NIGHT (2.5 ML)
     Dates: start: 20151006
  58. XALACOM [Suspect]
     Active Substance: LATANOPROST\TIMOLOL MALEATE
     Dosage: TO RIGHT EYE AT NIGHT (2.5 ML)
     Route: 065
     Dates: start: 20121210
  59. XALACOM [Suspect]
     Active Substance: LATANOPROST\TIMOLOL MALEATE
     Dosage: 2.5 ML, DAILYTO RIGHT EYE AT NIGHT (2.5 ML)
     Dates: start: 20120224
  60. XALACOM [Suspect]
     Active Substance: LATANOPROST\TIMOLOL MALEATE
     Dosage: TO RIGHT EYE AT NIGHT (2.5 ML)
     Dates: start: 20130206
  61. XALACOM [Suspect]
     Active Substance: LATANOPROST\TIMOLOL MALEATE
     Dosage: TO RIGHT EYE AT NIGHT (2.5 ML)
     Dates: start: 20120917
  62. XALACOM [Suspect]
     Active Substance: LATANOPROST\TIMOLOL MALEATE
     Dosage: TO RIGHT EYE AT NIGHT (2.5 ML)
     Dates: start: 20110321
  63. XALACOM [Suspect]
     Active Substance: LATANOPROST\TIMOLOL MALEATE
     Dosage: TO RIGHT EYE AT NIGHT (2.5 ML)
     Dates: start: 20110616
  64. XALACOM [Suspect]
     Active Substance: LATANOPROST\TIMOLOL MALEATE
     Dosage: TO RIGHT EYE AT NIGHT (2.5 ML)
     Dates: start: 20151116
  65. CLIMESSE [Suspect]
     Active Substance: ESTRADIOL VALERATE\NORETHINDRONE
     Dosage: 1 DF, 1X/DAY
     Route: 048
     Dates: start: 20090904
  66. CLIMESSE [Suspect]
     Active Substance: ESTRADIOL VALERATE\NORETHINDRONE
     Dosage: 1 DF, 1X/DAY
     Route: 048
     Dates: start: 20090330
  67. CLIMESSE [Suspect]
     Active Substance: ESTRADIOL VALERATE\NORETHINDRONE
     Dosage: 1 DF, 1X/DAY
     Route: 048
     Dates: start: 20120612
  68. LATANOPROST. [Suspect]
     Active Substance: LATANOPROST
     Dosage: 01 DROP AT NIGHT IN BOTH EYES
     Dates: start: 20070813
  69. LATANOPROST. [Suspect]
     Active Substance: LATANOPROST
     Dosage: 01 DROP AT NIGHT IN BOTH EYES
     Dates: start: 20051206
  70. LATANOPROST. [Suspect]
     Active Substance: LATANOPROST
     Dosage: 01 DROP AT NIGHT IN BOTH EYES
     Dates: start: 20050623
  71. XALACOM [Suspect]
     Active Substance: LATANOPROST\TIMOLOL MALEATE
     Dosage: TO RIGHT EYE AT NIGHT (2.5 ML)
     Dates: start: 20141230
  72. XALACOM [Suspect]
     Active Substance: LATANOPROST\TIMOLOL MALEATE
     Dosage: TO RIGHT EYE AT NIGHT (2.5 ML)
     Dates: start: 20141111, end: 20151116
  73. XALACOM [Suspect]
     Active Substance: LATANOPROST\TIMOLOL MALEATE
     Dosage: TO RIGHT EYE AT NIGHT (2.5 ML)
     Dates: start: 20120103
  74. XALACOM [Suspect]
     Active Substance: LATANOPROST\TIMOLOL MALEATE
     Dosage: TO RIGHT EYE AT NIGHT (2.5 ML)
     Dates: start: 20140909
  75. CLIMESSE [Suspect]
     Active Substance: ESTRADIOL VALERATE\NORETHINDRONE
     Dosage: 1 DF, 1X/DAY
     Route: 048
     Dates: start: 20140325
  76. CLIMESSE [Suspect]
     Active Substance: ESTRADIOL VALERATE\NORETHINDRONE
     Dosage: 1 DF, 1X/DAY
     Route: 048
     Dates: start: 20110119
  77. CLIMESSE [Suspect]
     Active Substance: ESTRADIOL VALERATE\NORETHINDRONE
     Dosage: 1 DF, 1X/DAY
     Route: 048
     Dates: start: 20150401, end: 20150401
  78. TRAVATAN [Suspect]
     Active Substance: TRAVOPROST
     Dosage: 40 UG/ML, AT NIGHT IN BOTH EYES
     Route: 047
     Dates: start: 20100802, end: 20101119
  79. LATANOPROST. [Suspect]
     Active Substance: LATANOPROST
     Dosage: 01 DROP AT NIGHT IN BOTH EYES
     Dates: start: 20070604
  80. LATANOPROST. [Suspect]
     Active Substance: LATANOPROST
     Dosage: 01 DROP AT NIGHT IN BOTH EYES
     Dates: start: 20060901
  81. LATANOPROST. [Suspect]
     Active Substance: LATANOPROST
     Dosage: 01 DROP AT NIGHT IN BOTH EYES
     Dates: start: 20060725
  82. XALACOM [Suspect]
     Active Substance: LATANOPROST\TIMOLOL MALEATE
     Dosage: TO RIGHT EYE AT NIGHT (2.5 ML)
     Dates: start: 20120327
  83. XALACOM [Suspect]
     Active Substance: LATANOPROST\TIMOLOL MALEATE
     Dosage: TO RIGHT EYE AT NIGHT (2.5 ML)
     Dates: start: 20110120
  84. XALACOM [Suspect]
     Active Substance: LATANOPROST\TIMOLOL MALEATE
     Dosage: TO RIGHT EYE AT NIGHT (2.5 ML)
     Dates: start: 20120612
  85. CLIMESSE [Suspect]
     Active Substance: ESTRADIOL VALERATE\NORETHINDRONE
     Dosage: 1 DF, 1X/DAY
     Route: 048
     Dates: start: 20050107
  86. CLIMESSE [Suspect]
     Active Substance: ESTRADIOL VALERATE\NORETHINDRONE
     Dosage: 1 DF, 1X/DAY
     Route: 048
     Dates: start: 20100811
  87. AMOXYCILLIN [Concomitant]
     Active Substance: AMOXICILLIN
     Dosage: THREE TIMES PER DAY (21 CAPSULES)
     Dates: start: 20050107
  88. LATANOPROST. [Suspect]
     Active Substance: LATANOPROST
     Dosage: 01 DROP AT NIGHT IN BOTH EYES
     Dates: start: 20060515
  89. LATANOPROST. [Suspect]
     Active Substance: LATANOPROST
     Dosage: 01 DROP AT NIGHT IN BOTH EYES
     Dates: start: 20060306
  90. LATANOPROST. [Suspect]
     Active Substance: LATANOPROST
     Dosage: 01 DROP AT NIGHT IN BOTH EYES
     Dates: start: 20070220
  91. XALACOM [Suspect]
     Active Substance: LATANOPROST\TIMOLOL MALEATE
     Dosage: TO RIGHT EYE AT NIGHT (2.5 ML)
     Dates: start: 20050412, end: 20050607
  92. XALACOM [Suspect]
     Active Substance: LATANOPROST\TIMOLOL MALEATE
     Dosage: TO RIGHT EYE AT NIGHT (2.5 ML)
     Dates: start: 20150331
  93. XALACOM [Suspect]
     Active Substance: LATANOPROST\TIMOLOL MALEATE
     Dosage: TO RIGHT EYE AT NIGHT (2.5 ML)
     Dates: start: 20050607
  94. XALACOM [Suspect]
     Active Substance: LATANOPROST\TIMOLOL MALEATE
     Dosage: TO RIGHT EYE AT NIGHT (2.5 ML)
     Dates: start: 20141111, end: 20151116
  95. XALACOM [Suspect]
     Active Substance: LATANOPROST\TIMOLOL MALEATE
     Dosage: TO RIGHT EYE AT NIGHT (2.5 ML)
     Dates: start: 20150305
  96. XALACOM [Suspect]
     Active Substance: LATANOPROST\TIMOLOL MALEATE
     Dosage: TO RIGHT EYE AT NIGHT (2.5 ML)
     Route: 065
     Dates: start: 20110512
  97. XALACOM [Suspect]
     Active Substance: LATANOPROST\TIMOLOL MALEATE
     Dosage: TO RIGHT EYE AT NIGHT (2.5 ML)
     Dates: start: 20121112
  98. XALACOM [Suspect]
     Active Substance: LATANOPROST\TIMOLOL MALEATE
     Dosage: TO RIGHT EYE AT NIGHT (2.5 ML)
     Dates: start: 20140812
  99. XALACOM [Suspect]
     Active Substance: LATANOPROST\TIMOLOL MALEATE
     Dosage: TO RIGHT EYE AT NIGHT (2.5 ML)
     Dates: start: 20150114
  100. CLIMESSE [Suspect]
     Active Substance: ESTRADIOL VALERATE\NORETHINDRONE
     Dosage: 1 DF, 1X/DAY
     Route: 048
     Dates: start: 20050706
  101. CLIMESSE [Suspect]
     Active Substance: ESTRADIOL VALERATE\NORETHINDRONE
     Dosage: UNK
     Route: 048
     Dates: start: 20130509
  102. CLIMESSE [Suspect]
     Active Substance: ESTRADIOL VALERATE\NORETHINDRONE
     Dosage: 1 DF, 1X/DAY
     Route: 048
     Dates: start: 20060105
  103. CLIMESSE [Suspect]
     Active Substance: ESTRADIOL VALERATE\NORETHINDRONE
     Dosage: 1 DF, 1X/DAY
     Route: 048
     Dates: start: 20030210
  104. CLIMESSE [Suspect]
     Active Substance: ESTRADIOL VALERATE\NORETHINDRONE
     Dosage: 1 DF, 1X/DAY
     Route: 048
     Dates: start: 20070509
  105. AMOXYCILLIN [Concomitant]
     Active Substance: AMOXICILLIN
     Dosage: THREE TIMES PER DAY (15 CAPSULES)
     Dates: start: 19900305

REACTIONS (7)
  - Glaucoma [Not Recovered/Not Resolved]
  - Finger deformity [Unknown]
  - Normal tension glaucoma [Not Recovered/Not Resolved]
  - Facial paralysis [Recovered/Resolved]
  - Multiple sclerosis [Not Recovered/Not Resolved]
  - Seborrhoeic keratosis [Not Recovered/Not Resolved]
  - Haemorrhoids [Not Recovered/Not Resolved]

NARRATIVE: CASE EVENT DATE: 20021101
